FAERS Safety Report 15227670 (Version 1)
Quarter: 2018Q3

REPORT INFORMATION
  Report Type: Spontaneous
  Country: FR (occurrence: FR)
  Receive Date: 20180801
  Receipt Date: 20180801
  Transmission Date: 20181010
  Serious: Yes (Other)
  Sender: FDA-Public Use
  Company Number: FR-PFIZER INC-2018301394

PATIENT
  Sex: Male

DRUGS (1)
  1. SALAZOPYRINE [Suspect]
     Active Substance: SULFASALAZINE
     Indication: ANKYLOSING SPONDYLITIS
     Dosage: UNK
     Dates: start: 201710

REACTIONS (7)
  - Depression [Unknown]
  - Product use in unapproved indication [Unknown]
  - Uveitis [Unknown]
  - Chest discomfort [Unknown]
  - Chest pain [Unknown]
  - Photosensitivity reaction [Unknown]
  - Headache [Unknown]

NARRATIVE: CASE EVENT DATE: 201807
